FAERS Safety Report 10212439 (Version 2)
Quarter: 2014Q2

REPORT INFORMATION
  Report Type: Spontaneous
  Country: US (occurrence: US)
  Receive Date: 20140602
  Receipt Date: 20140624
  Transmission Date: 20141212
  Serious: No
  Sender: FDA-Public Use
  Company Number: US-AMGEN-USASP2014037721

PATIENT
  Age: 49 Year
  Sex: Male

DRUGS (8)
  1. ENBREL [Suspect]
     Indication: PSORIATIC ARTHROPATHY
     Dosage: 50 MG, Q2WK
     Route: 058
     Dates: start: 20130707
  2. METHOTREXATE [Concomitant]
     Dosage: 2.5 MG, QWK
  3. OXYCONTIN [Concomitant]
     Dosage: UNK
  4. DIAZEPAM [Concomitant]
     Dosage: UNK
  5. WARFARIN [Concomitant]
     Dosage: UNK
  6. FENTANYL [Concomitant]
     Dosage: UNK
  7. VOLTAREN                           /00372301/ [Concomitant]
     Dosage: UNK
  8. AMITRIPTYLINE [Concomitant]
     Dosage: UNK

REACTIONS (2)
  - Synovial fluid crystal present [Not Recovered/Not Resolved]
  - Arthralgia [Not Recovered/Not Resolved]
